FAERS Safety Report 16634712 (Version 1)
Quarter: 2019Q3

REPORT INFORMATION
  Report Type: Spontaneous
  Country: JP (occurrence: JP)
  Receive Date: 20190726
  Receipt Date: 20190726
  Transmission Date: 20191004
  Serious: Yes (Death, Life-Threatening, Hospitalization)
  Sender: FDA-Public Use
  Company Number: JP-ACTELION-A-CH2019-193432

PATIENT
  Age: 40 Year
  Sex: Female

DRUGS (5)
  1. BERAPROST [Concomitant]
     Active Substance: BERAPROST
  2. EPOPROSTENOL SODIUM. [Suspect]
     Active Substance: EPOPROSTENOL SODIUM
     Indication: PULMONARY HYPERTENSION
     Route: 042
  3. RIOCIGUAT. [Concomitant]
     Active Substance: RIOCIGUAT
     Indication: PULMONARY HYPERTENSION
  4. OPSUMIT [Suspect]
     Active Substance: MACITENTAN
     Indication: PULMONARY HYPERTENSION
     Route: 048
  5. NITRIC OXIDE. [Concomitant]
     Active Substance: NITRIC OXIDE

REACTIONS (5)
  - Catheter placement [Unknown]
  - Death [Fatal]
  - Atypical haemolytic uraemic syndrome [Unknown]
  - Sepsis [Unknown]
  - Drug ineffective [Unknown]
